FAERS Safety Report 5161753-0 (Version None)
Quarter: 2006Q4

REPORT INFORMATION
  Report Type: 
  Country: None (occurrence: None)
  Receive Date: 20061130
  Receipt Date: 20061123
  Transmission Date: 20070319
  Serious: Yes (Hospitalization)
  Sender: FDA-Public Use
  Company Number: FR-GLAXOSMITHKLINE-B0448007A

PATIENT
  Age: 4 Day
  Sex: Female
  Weight: 2.6 kg

DRUGS (5)
  1. RETROVIR [Suspect]
     Indication: ANTIVIRAL PROPHYLAXIS
     Route: 048
     Dates: start: 19991201
  2. RETROVIR [Suspect]
     Dates: end: 19991201
  3. VIDEX [Suspect]
     Indication: ANTIVIRAL PROPHYLAXIS
     Dates: end: 19991201
  4. VIRACEPT [Suspect]
     Indication: ANTIVIRAL PROPHYLAXIS
     Dates: end: 19991201
  5. RETROVIR [Concomitant]
     Dates: start: 19991210, end: 19991210

REACTIONS (6)
  - ASPARTATE AMINOTRANSFERASE INCREASED [None]
  - BLOOD CREATININE INCREASED [None]
  - DRUG EXPOSURE DURING PREGNANCY [None]
  - LEUKOPENIA [None]
  - NEUTROPENIA [None]
  - URINE CYTOMEGALOVIRUS POSITIVE [None]
